FAERS Safety Report 4980307-X (Version None)
Quarter: 2006Q2

REPORT INFORMATION
  Report Type: 
  Country: None (occurrence: None)
  Receive Date: 20060420
  Receipt Date: 20060420
  Transmission Date: 20061013
  Serious: Yes (Other)
  Sender: FDA-Public Use
  Company Number: None

PATIENT
  Age: 67 Year
  Sex: Male
  Weight: 112.4 kg

DRUGS (12)
  1. MORPHINE [Suspect]
  2. CLOPIDOGREL BISULFATE [Concomitant]
  3. ASPIRIN [Concomitant]
  4. DOCUSATE NA [Concomitant]
  5. FELODIPINE [Concomitant]
  6. SPIRONOLACTONE [Concomitant]
  7. COUMADIN [Concomitant]
  8. NITROGLYCERIN [Concomitant]
  9. LISINOPRIL [Concomitant]
  10. SERTRALINE HCL [Concomitant]
  11. SIMVASTATIN [Concomitant]
  12. OMEPRAZOLE [Concomitant]

REACTIONS (1)
  - URTICARIA [None]
